FAERS Safety Report 20482361 (Version 1)
Quarter: 2022Q1

REPORT INFORMATION
  Report Type: Spontaneous
  Country: PL (occurrence: PL)
  Receive Date: 20220217
  Receipt Date: 20220217
  Transmission Date: 20220423
  Serious: Yes (Other)
  Sender: FDA-Public Use
  Company Number: PL-AMGEN-POLSP2022023545

PATIENT
  Age: 9 Year
  Sex: Male

DRUGS (2)
  1. FILGRASTIM [Suspect]
     Active Substance: FILGRASTIM
     Indication: Leukopenia
     Dosage: UNK
     Route: 065
  2. FILGRASTIM [Suspect]
     Active Substance: FILGRASTIM
     Indication: Off label use

REACTIONS (6)
  - Otitis media [Unknown]
  - Neurosensory hypoacusis [Unknown]
  - Renal mass [Unknown]
  - Kidney fibrosis [Unknown]
  - Inflammation [Unknown]
  - Off label use [Unknown]
